FAERS Safety Report 10174909 (Version 2)
Quarter: 2014Q3

REPORT INFORMATION
  Report Type: Spontaneous
  Country: IT (occurrence: IT)
  Receive Date: 20140515
  Receipt Date: 20140716
  Transmission Date: 20150326
  Serious: Yes (Hospitalization)
  Sender: FDA-Public Use
  Company Number: IT-MYLANLABS-2014S1010395

PATIENT
  Age: 24 Year
  Sex: Female
  Weight: 54 kg

DRUGS (2)
  1. DELTACORTENE [Interacting]
     Active Substance: PREDNISONE
     Indication: COUGH
     Dosage: 10 MG DAILY
     Route: 048
     Dates: start: 20140405, end: 20140412
  2. CIPROFLOXACIN. [Suspect]
     Active Substance: CIPROFLOXACIN
     Indication: COUGH
     Dosage: 1 G DAILY
     Route: 048
     Dates: start: 20140405, end: 20140413

REACTIONS (3)
  - Drug interaction [Recovering/Resolving]
  - Toxic epidermal necrolysis [Recovering/Resolving]
  - Stevens-Johnson syndrome [Recovering/Resolving]

NARRATIVE: CASE EVENT DATE: 20140414
